FAERS Safety Report 10706587 (Version 1)
Quarter: 2015Q1

REPORT INFORMATION
  Report Type: Spontaneous
  Country: US (occurrence: None)
  Receive Date: 20150109
  Receipt Date: 20150109
  Transmission Date: 20150721
  Serious: Yes (Other)
  Sender: FDA-Public Use
  Company Number: 2015SA000502

PATIENT
  Age: 63 Year
  Sex: Male

DRUGS (4)
  1. MORPHINE SALT NOT SPECIFIED / UNKNOWN / UNKNOWN [Suspect]
     Active Substance: MORPHINE
  2. CAFFEINE. [Suspect]
     Active Substance: CAFFEINE
  3. DIPHENHYDRAMINE / UNKNOWN / UNKNOWN [Suspect]
     Active Substance: DIPHENHYDRAMINE
  4. CLONAZEPAM / UNKNOWN / UNKNOWN [Suspect]
     Active Substance: CLONAZEPAM

REACTIONS (7)
  - Toxicity to various agents [None]
  - Clostridium test positive [None]
  - Road traffic accident [None]
  - Drug abuse [None]
  - Multiple injuries [None]
  - Drug screen positive [None]
  - Cardio-respiratory arrest [None]
